FAERS Safety Report 11654857 (Version 2)
Quarter: 2015Q4

REPORT INFORMATION
  Report Type: Spontaneous
  Country: FR (occurrence: FR)
  Receive Date: 20151023
  Receipt Date: 20151110
  Transmission Date: 20160304
  Serious: Yes (Hospitalization)
  Sender: FDA-Public Use
  Company Number: FR-BAYER-2015-442958

PATIENT
  Age: 73 Year
  Sex: Female
  Weight: 46 kg

DRUGS (10)
  1. STIVARGA [Suspect]
     Active Substance: REGORAFENIB
     Indication: ADENOCARCINOMA OF COLON
     Dosage: 120 MG, TID
     Route: 048
     Dates: start: 20150820, end: 20150913
  2. SIMVASTATINE [Concomitant]
     Active Substance: SIMVASTATIN
     Dosage: 1 DF, QD
  3. AMLOR [Concomitant]
     Active Substance: AMLODIPINE BESYLATE
     Dosage: 1 DF, QD
  4. PROZAC [Concomitant]
     Active Substance: FLUOXETINE HYDROCHLORIDE
     Dosage: 1 DF, Q1HR
  5. KARDEGIC [Concomitant]
     Active Substance: ASPIRIN LYSINE
     Dosage: 1 DF, QD
  6. TAREG [Concomitant]
     Active Substance: VALSARTAN
     Dosage: 1 DF, QD
  7. STIVARGA [Suspect]
     Active Substance: REGORAFENIB
     Indication: METASTASES TO LIVER
  8. CARDENSIEL [Concomitant]
     Active Substance: BISOPROLOL FUMARATE
     Dosage: 1 DF, QD
  9. LASILIX [Concomitant]
     Active Substance: FUROSEMIDE
     Dosage: 1 DF, QD
  10. INEXIUM [Concomitant]
     Active Substance: ESOMEPRAZOLE
     Dosage: 1 DF, QD

REACTIONS (11)
  - Diarrhoea [Recovered/Resolved]
  - Jaundice [Recovered/Resolved]
  - Decreased appetite [Recovered/Resolved]
  - Dehydration [Recovered/Resolved]
  - Rash macular [Recovered/Resolved]
  - Toxic skin eruption [Recovered/Resolved]
  - Vital functions abnormal [Recovered/Resolved]
  - Dyspnoea [Recovered/Resolved]
  - Asthenia [Not Recovered/Not Resolved]
  - Prerenal failure [Recovered/Resolved]
  - Hepatic failure [Recovered/Resolved]

NARRATIVE: CASE EVENT DATE: 20150914
